FAERS Safety Report 8245077 (Version 2)
Quarter: 2013Q2

REPORT INFORMATION
  Report Type: Spontaneous
  Country: MX (occurrence: MX)
  Receive Date: 20111115
  Receipt Date: 20130626
  Transmission Date: 20140414
  Serious: Yes (Other)
  Sender: FDA-Public Use
  Company Number: MX-ROCHE-1012452

PATIENT
  Age: 11 Year
  Sex: Male

DRUGS (2)
  1. XOLAIR [Suspect]
     Indication: ASTHMA
     Dosage: 2 APPLICATION
     Route: 065
     Dates: start: 201012
  2. XOLAIR [Suspect]
     Dosage: 1 APPLICATION
     Route: 065

REACTIONS (4)
  - Asthma [Recovered/Resolved]
  - Blood immunoglobulin E increased [Unknown]
  - Bronchial disorder [Recovered/Resolved]
  - Asthmatic crisis [Recovered/Resolved]
